FAERS Safety Report 23976113 (Version 1)
Quarter: 2024Q2

REPORT INFORMATION
  Report Type: Spontaneous
  Country: US (occurrence: US)
  Receive Date: 20240614
  Receipt Date: 20240614
  Transmission Date: 20240716
  Serious: Yes (Other)
  Sender: FDA-Public Use
  Company Number: US-PFIZER INC-PV202400076874

PATIENT
  Age: 78 Year
  Sex: Female

DRUGS (5)
  1. AZITHROMYCIN [Suspect]
     Active Substance: AZITHROMYCIN
     Indication: Mycobacterium avium complex infection
     Dosage: UNK UNK, CYCLIC (THREE TIMES A WEEK)
     Dates: start: 20230707, end: 20231108
  2. AZITHROMYCIN [Suspect]
     Active Substance: AZITHROMYCIN
     Dosage: 500 MG
  3. ETHAMBUTOL [Suspect]
     Active Substance: ETHAMBUTOL HYDROCHLORIDE
     Indication: Mycobacterium avium complex infection
     Dosage: UNK, CYCLIC (THREE TIME A WEEK)
     Dates: start: 20230707, end: 20231016
  4. RIFAMPIN [Suspect]
     Active Substance: RIFAMPIN
     Indication: Mycobacterium avium complex infection
     Dosage: UNK UNK, CYCLIC (THREE TIME A WEEK)
     Dates: start: 20230707, end: 20231108
  5. RIFABUTIN [Concomitant]
     Active Substance: RIFABUTIN
     Indication: Mycobacterium avium complex infection
     Dosage: 300 MG

REACTIONS (4)
  - Electrocardiogram QT prolonged [Recovering/Resolving]
  - Optic neuritis [Recovering/Resolving]
  - Nausea [Recovering/Resolving]
  - Off label use [Unknown]
